FAERS Safety Report 9359220 (Version 4)
Quarter: 2014Q3

REPORT INFORMATION
  Report Type: Spontaneous
  Country: US (occurrence: US)
  Receive Date: 20130620
  Receipt Date: 20140702
  Transmission Date: 20150326
  Serious: Yes (Hospitalization, Disabling, Other)
  Sender: FDA-Public Use
  Company Number: US-009507513-1306USA006599

PATIENT
  Sex: Male
  Weight: 98.87 kg

DRUGS (1)
  1. PROPECIA [Suspect]
     Active Substance: FINASTERIDE
     Indication: ALOPECIA
     Dosage: 1 MG, UNK
     Route: 048
     Dates: start: 200009, end: 20080220

REACTIONS (24)
  - Suicidal ideation [Unknown]
  - Migraine [Unknown]
  - Otitis media [Unknown]
  - Lymphadenopathy [Recovering/Resolving]
  - Hyperlipidaemia [Unknown]
  - Benign neoplasm of skin [Unknown]
  - Tendonitis [Unknown]
  - Sexual dysfunction [Not Recovered/Not Resolved]
  - Bronchitis [Unknown]
  - Fatigue [Recovered/Resolved]
  - Drug abuse [Unknown]
  - Tonsillectomy [Unknown]
  - Anxiety [Not Recovered/Not Resolved]
  - Malaise [Recovered/Resolved]
  - Depression [Not Recovered/Not Resolved]
  - Hypogonadism [Not Recovered/Not Resolved]
  - Suicide attempt [Unknown]
  - Urethritis [Unknown]
  - Erectile dysfunction [Not Recovered/Not Resolved]
  - Uvulectomy [Unknown]
  - Substance abuse [Not Recovered/Not Resolved]
  - Mental disorder [Unknown]
  - Fatigue [Unknown]
  - Panic attack [Not Recovered/Not Resolved]

NARRATIVE: CASE EVENT DATE: 2000
